FAERS Safety Report 9985248 (Version 1)
Quarter: 2014Q1

REPORT INFORMATION
  Report Type: Report from Study
  Country: US (occurrence: US)
  Receive Date: 20140307
  Receipt Date: 20140307
  Transmission Date: 20141002
  Serious: No
  Sender: FDA-Public Use
  Company Number: US-ABBVIE-14P-163-1185737-00

PATIENT
  Age: 26 Year
  Sex: Female

DRUGS (3)
  1. HUMIRA [Suspect]
     Indication: CROHN^S DISEASE
     Dates: start: 20131212, end: 20131212
  2. HUMIRA [Suspect]
     Dosage: 40 MG OUT OF 80 MG
     Dates: start: 20131226
  3. MERCAPTOPURINE [Concomitant]
     Indication: CROHN^S DISEASE

REACTIONS (1)
  - Wrong technique in drug usage process [Recovered/Resolved]
